FAERS Safety Report 21306093 (Version 3)
Quarter: 2022Q4

REPORT INFORMATION
  Report Type: Report from Study
  Country: CN (occurrence: None)
  Receive Date: 20220908
  Receipt Date: 20221017
  Transmission Date: 20230113
  Serious: Yes (Hospitalization)
  Sender: FDA-Public Use
  Company Number: CN-ROCHE-3173991

PATIENT
  Age: 78 Year
  Sex: Male
  Weight: 55 kg

DRUGS (3)
  1. ATEZOLIZUMAB [Suspect]
     Active Substance: ATEZOLIZUMAB
     Indication: Non-small cell lung cancer
     Dosage: ON 25/AUG/2022, HE MOST RECENT DOSE OF ATEZOLIZUMAB PRIOR TO AE AND SAE ONSET
     Route: 041
     Dates: start: 20190626
  2. CALCIUM CARBONATE\CHOLECALCIFEROL [Concomitant]
     Active Substance: CALCIUM CARBONATE\CHOLECALCIFEROL
     Indication: Prophylaxis
     Route: 048
     Dates: start: 20191103
  3. REBAMIPIDE [Concomitant]
     Active Substance: REBAMIPIDE
     Route: 042
     Dates: start: 20191103

REACTIONS (1)
  - Aortic dissection [Recovered/Resolved]

NARRATIVE: CASE EVENT DATE: 20220826
